FAERS Safety Report 5366594-7 (Version None)
Quarter: 2007Q2

REPORT INFORMATION
  Report Type: 
  Country: None (occurrence: None)
  Receive Date: 20070622
  Receipt Date: 20070613
  Transmission Date: 20071010
  Serious: Yes (Other)
  Sender: FDA-Public Use
  Company Number: AT-PFIZER INC-2007048447

PATIENT
  Age: 27 Year
  Sex: Female

DRUGS (1)
  1. DEPOCON [Suspect]
     Indication: CONTRACEPTION
     Route: 030

REACTIONS (3)
  - CHRONIC INFLAMMATORY DEMYELINATING POLYRADICULONEUROPATHY [None]
  - CYTOMEGALOVIRUS INFECTION [None]
  - PULMONARY EMBOLISM [None]
